FAERS Safety Report 7404867-4 (Version None)
Quarter: 2011Q2

REPORT INFORMATION
  Report Type: 
  Country: None (occurrence: None)
  Receive Date: 20110411
  Receipt Date: 20110328
  Transmission Date: 20111010
  Serious: Yes (Hospitalization)
  Sender: FDA-Public Use
  Company Number: FR-JNJFOC-20110312823

PATIENT
  Sex: Female

DRUGS (9)
  1. IMOVANE [Concomitant]
     Route: 048
  2. LEVOTHYROX [Concomitant]
     Indication: HYPOTHYROIDISM
     Route: 048
  3. RIVOTRIL [Concomitant]
     Route: 048
  4. LASIX [Concomitant]
     Indication: HYPERTENSION
     Route: 048
  5. HALDOL [Suspect]
     Indication: ABNORMAL BEHAVIOUR
     Route: 048
  6. ACETAMINOPHEN AND TRAMADOL HCL [Concomitant]
     Indication: BACK PAIN
     Route: 048
  7. DOMPERIDONE [Concomitant]
     Indication: PRODUCT USED FOR UNKNOWN INDICATION
     Route: 048
  8. NEXIUM [Concomitant]
     Route: 048
  9. TARDYFERON [Concomitant]
     Route: 048

REACTIONS (1)
  - HEPATITIS CHOLESTATIC [None]
